FAERS Safety Report 16092518 (Version 1)
Quarter: 2019Q1

REPORT INFORMATION
  Report Type: Spontaneous
  Country: US (occurrence: US)
  Receive Date: 20190319
  Receipt Date: 20190319
  Transmission Date: 20190418
  Serious: No
  Sender: FDA-Public Use
  Company Number: US-MILLICENT HOLDINGS LTD.-MILL20191083

PATIENT
  Age: 61 Year
  Sex: Female

DRUGS (2)
  1. FEMRING [Suspect]
     Active Substance: ESTRADIOL ACETATE
     Dosage: INSERT ONE RING VAGINALLY
     Route: 067
     Dates: start: 2016
  2. FEMRING [Suspect]
     Active Substance: ESTRADIOL ACETATE
     Indication: PRODUCT USED FOR UNKNOWN INDICATION
     Dosage: INSERT ONE RING VAGINALLY
     Route: 067
     Dates: start: 20180410

REACTIONS (2)
  - Drug ineffective [Unknown]
  - Adverse event [Not Recovered/Not Resolved]

NARRATIVE: CASE EVENT DATE: 20180410
